FAERS Safety Report 8328922-X (Version None)
Quarter: 2012Q2

REPORT INFORMATION
  Report Type: 
  Country: None (occurrence: None)
  Receive Date: 20120502
  Receipt Date: 20101018
  Transmission Date: 20120825
  Serious: No
  Sender: FDA-Public Use
  Company Number: US-TEVA-2010005153

PATIENT
  Age: 48 Year
  Sex: Female

DRUGS (6)
  1. CLONAZEPAM [Concomitant]
  2. NUVIGIL [Suspect]
     Indication: SLEEP APNOEA SYNDROME
     Dosage: 250 MILLIGRAM;
     Route: 048
     Dates: start: 20100816, end: 20100801
  3. COMBIVENT [Concomitant]
  4. EFFEXOR [Concomitant]
  5. LISINOPRIL [Concomitant]
  6. NUVIGIL [Suspect]
     Dosage: 250 MILLIGRAM;
     Route: 048
     Dates: start: 20100910, end: 20100901

REACTIONS (1)
  - OEDEMA PERIPHERAL [None]
